FAERS Safety Report 23231925 (Version 1)
Quarter: 2023Q4

REPORT INFORMATION
  Report Type: Spontaneous
  Country: US (occurrence: None)
  Receive Date: 20231126
  Receipt Date: 20231126
  Transmission Date: 20240110
  Serious: Yes (Other)
  Sender: FDA-Public Use
  Company Number: None

PATIENT
  Age: 50 Year
  Sex: Male
  Weight: 67.5 kg

DRUGS (34)
  1. MOUNJARO [Suspect]
     Active Substance: TIRZEPATIDE
     Indication: Type 2 diabetes mellitus
     Dosage: FREQUENCY : WEEKLY;?
     Route: 030
     Dates: start: 20230707, end: 20231012
  2. ADDERALL [Concomitant]
     Active Substance: AMPHETAMINE ASPARTATE\AMPHETAMINE SULFATE\DEXTROAMPHETAMINE SACCHARATE\DEXTROAMPHETAMINE SULFATE
  3. STRATTERA [Concomitant]
     Active Substance: ATOMOXETINE HYDROCHLORIDE
  4. CIALIS [Concomitant]
     Active Substance: TADALAFIL
  5. JARDIANCE [Concomitant]
     Active Substance: EMPAGLIFLOZIN
  6. SIMVASTATIN [Concomitant]
     Active Substance: SIMVASTATIN
  7. LOVAZA [Concomitant]
     Active Substance: OMEGA-3-ACID ETHYL ESTERS
  8. TESTIM [Concomitant]
     Active Substance: TESTOSTERONE
  9. MEMANTINE [Concomitant]
     Active Substance: MEMANTINE
  10. Modafinil/armodafinil [Concomitant]
  11. MULTI-VITAMIN [Concomitant]
     Active Substance: .ALPHA.-TOCOPHEROL ACETATE, DL-\ASCORBIC ACID\CYANOCOBALAMIN\FLUORIDE ION\FOLIC ACID\NIACIN\PYRIDOXI
  12. VITAMIN B COMPLEX [Concomitant]
     Active Substance: CYANOCOBALAMIN\DEXPANTHENOL\NIACINAMIDE\PYRIDOXINE HYDROCHLORIDE\RIBOFLAVIN 5^-PHOSPHATE SODIUM\THIA
  13. CALCIUM CITRATE [Concomitant]
     Active Substance: CALCIUM CITRATE
  14. MAGNESIUM [Concomitant]
     Active Substance: MAGNESIUM
  15. Curcummin [Concomitant]
  16. NAC [Concomitant]
  17. ACETYLCARNITINE [Concomitant]
     Active Substance: ACETYLCARNITINE
  18. TMG [Concomitant]
  19. CITRULLINE [Concomitant]
     Active Substance: CITRULLINE
  20. ARGININE [Concomitant]
     Active Substance: ARGININE
  21. TAURINE [Concomitant]
     Active Substance: TAURINE
  22. ADEMETIONINE [Concomitant]
     Active Substance: ADEMETIONINE
  23. PQQ [Concomitant]
  24. Low dose zync w/copper [Concomitant]
  25. Se-methyl-selenocysteine [Concomitant]
  26. Low dose Iron [Concomitant]
  27. Low dose lithium [Concomitant]
  28. GLUCOSAMINE [Concomitant]
     Active Substance: GLUCOSAMINE
  29. Alpha gpc [Concomitant]
  30. CHONDROITIN [Concomitant]
     Active Substance: CHONDROITIN
  31. PHOSPHATIDYL SERINE [Concomitant]
     Active Substance: PHOSPHATIDYL SERINE
  32. KRILL OIL [Concomitant]
     Active Substance: DIETARY SUPPLEMENT\KRILL OIL
  33. VINPOCETINE [Concomitant]
     Active Substance: VINPOCETINE
  34. BENFOTIAMINE [Concomitant]
     Active Substance: BENFOTIAMINE

REACTIONS (10)
  - Product use issue [None]
  - Drug level below therapeutic [None]
  - Drug ineffective [None]
  - Quality of life decreased [None]
  - Impaired work ability [None]
  - Drug monitoring procedure not performed [None]
  - Economic problem [None]
  - Loss of personal independence in daily activities [None]
  - Drug interaction [None]
  - Product communication issue [None]

NARRATIVE: CASE EVENT DATE: 20230401
